FAERS Safety Report 9461773 (Version 1)
Quarter: 2013Q3

REPORT INFORMATION
  Report Type: Spontaneous
  Country: FR (occurrence: FR)
  Receive Date: 20130816
  Receipt Date: 20130816
  Transmission Date: 20140515
  Serious: Yes (Hospitalization)
  Sender: FDA-Public Use
  Company Number: FR-JNJFOC-20130806814

PATIENT
  Age: 74 Year
  Sex: Female

DRUGS (8)
  1. XARELTO [Suspect]
     Indication: THROMBOSIS PROPHYLAXIS
     Route: 048
     Dates: start: 201306
  2. XARELTO [Suspect]
     Indication: CEREBROVASCULAR ACCIDENT PROPHYLAXIS
     Route: 048
     Dates: start: 201306
  3. XARELTO [Suspect]
     Indication: ATRIAL FIBRILLATION
     Route: 048
     Dates: start: 201306
  4. XARELTO [Suspect]
     Indication: ISCHAEMIC STROKE
     Route: 048
     Dates: start: 201306
  5. TRIATEC [Concomitant]
     Route: 065
  6. LOXEN [Concomitant]
     Route: 065
  7. TAHOR [Concomitant]
     Route: 065
  8. CORDARONE [Concomitant]
     Route: 065

REACTIONS (2)
  - Ischaemic stroke [Unknown]
  - Drug ineffective [Unknown]
